FAERS Safety Report 7189990-4 (Version None)
Quarter: 2010Q4

REPORT INFORMATION
  Report Type: 
  Country: None (occurrence: None)
  Receive Date: 20101213
  Receipt Date: 20101130
  Transmission Date: 20110411
  Serious: Yes (Other)
  Sender: FDA-Public Use
  Company Number: 2010006223

PATIENT
  Sex: Male

DRUGS (7)
  1. ACTIQ [Suspect]
     Indication: BACK PAIN
     Dosage: (800 MCG, 4 TIMES DAILY AS NEEDED), BU; (1600 MCG,4 TIMES DAILY AS NEEDED), BU
     Route: 002
     Dates: start: 19920101, end: 20020101
  2. ACTIQ [Suspect]
     Indication: BACK PAIN
     Dosage: (800 MCG, 4 TIMES DAILY AS NEEDED), BU; (1600 MCG,4 TIMES DAILY AS NEEDED), BU
     Route: 002
     Dates: start: 19920101, end: 20020101
  3. OXYCONTIN [Concomitant]
  4. FLEXERIL [Concomitant]
  5. SOMA [Concomitant]
  6. ROXICODONE [Concomitant]
  7. DILAUDID [Concomitant]

REACTIONS (3)
  - DENTAL CARIES [None]
  - GINGIVAL HYPOPLASIA [None]
  - STOMATITIS [None]
